FAERS Safety Report 4913192-2 (Version None)
Quarter: 2006Q1

REPORT INFORMATION
  Report Type: 
  Country: None (occurrence: None)
  Receive Date: 20060215
  Receipt Date: 20051014
  Transmission Date: 20060701
  Serious: Yes (Other)
  Sender: FDA-Public Use
  Company Number: US-MERCK-0510USA07531

PATIENT
  Sex: Male
  Weight: 87 kg

DRUGS (1)
  1. VIOXX [Suspect]
     Route: 048
     Dates: start: 19990716, end: 20011107

REACTIONS (7)
  - ARTERIOSCLEROSIS [None]
  - CHEST PAIN [None]
  - ERECTILE DYSFUNCTION [None]
  - HYPERLIPIDAEMIA [None]
  - HYPERTENSION [None]
  - LIBIDO DECREASED [None]
  - MYOCARDIAL INFARCTION [None]
